FAERS Safety Report 17039518 (Version 1)
Quarter: 2019Q4

REPORT INFORMATION
  Report Type: Report from Study
  Country: DE (occurrence: DE)
  Receive Date: 20191115
  Receipt Date: 20191115
  Transmission Date: 20200122
  Serious: Yes (Other)
  Sender: FDA-Public Use
  Company Number: NVSC2019DE036620

PATIENT
  Sex: Female

DRUGS (6)
  1. ACIC [Concomitant]
     Active Substance: ACYCLOVIR
     Dosage: 1200 MG
     Route: 065
     Dates: start: 20191016, end: 20191020
  2. ACIC [Concomitant]
     Active Substance: ACYCLOVIR
     Dosage: 400 MG
     Route: 065
     Dates: start: 20190704
  3. ACIC [Concomitant]
     Active Substance: ACYCLOVIR
     Dosage: 2400 MG
     Route: 065
     Dates: start: 20191011, end: 20191015
  4. ACIC [Concomitant]
     Active Substance: ACYCLOVIR
     Indication: GENITAL HERPES
     Dosage: 400 UNK
     Route: 065
     Dates: start: 201904
  5. MIRTAZAPIN [Concomitant]
     Active Substance: MIRTAZAPINE
     Indication: SLEEP DISORDER
     Dosage: 7.5 MG
     Route: 065
     Dates: start: 20190704
  6. GILENYA [Suspect]
     Active Substance: FINGOLIMOD HYDROCHLORIDE
     Indication: MULTIPLE SCLEROSIS
     Dosage: 0.5 MG, QD
     Route: 048
     Dates: start: 20161020

REACTIONS (2)
  - CD4 lymphocytes decreased [Unknown]
  - White blood cell count decreased [Unknown]

NARRATIVE: CASE EVENT DATE: 20161121
